FAERS Safety Report 8998471 (Version 2)
Quarter: 2013Q1

REPORT INFORMATION
  Report Type: Report from Study
  Country: US (occurrence: US)
  Receive Date: 20130103
  Receipt Date: 20130114
  Transmission Date: 20140127
  Serious: Yes (Other)
  Sender: FDA-Public Use
  Company Number: US-ACTELION-A-US2012-74651

PATIENT
  Age: 55 Year
  Sex: Female

DRUGS (5)
  1. VELETRI [Suspect]
     Indication: PULMONARY ARTERIAL HYPERTENSION
     Dosage: 18 NG/KG, PER MIN
     Route: 042
     Dates: start: 20120612
  2. VELETRI [Suspect]
     Dosage: 19 NG/KG, PER MIN
     Route: 042
     Dates: start: 20120612, end: 20121111
  3. VELETRI [Suspect]
     Dosage: 12 UNK, UNK
     Route: 042
     Dates: start: 20121112
  4. LETAIRIS [Concomitant]
  5. SILDENAFIL [Concomitant]

REACTIONS (15)
  - Chills [Recovering/Resolving]
  - Yawning [Recovering/Resolving]
  - Diarrhoea [Recovering/Resolving]
  - Fatigue [Recovering/Resolving]
  - Flushing [Recovering/Resolving]
  - Pain [Recovering/Resolving]
  - Headache [Recovering/Resolving]
  - Pain in jaw [Recovering/Resolving]
  - Vomiting [Recovering/Resolving]
  - Insomnia [Unknown]
  - Pyrexia [Unknown]
  - Oxygen saturation decreased [Unknown]
  - Dyspnoea [Unknown]
  - Pain in extremity [Unknown]
  - Malaise [Unknown]
